FAERS Safety Report 8584227-3 (Version None)
Quarter: 2012Q3

REPORT INFORMATION
  Report Type: 
  Country: None (occurrence: None)
  Receive Date: 20120810
  Receipt Date: 20120611
  Transmission Date: 20120928
  Serious: No
  Sender: FDA-Public Use
  Company Number: US-009507513-2012SP023946

PATIENT

DRUGS (2)
  1. CLARITIN REDITABS [Suspect]
     Indication: HYPERSENSITIVITY
     Dosage: 5 MG, BID
     Route: 048
     Dates: start: 20120415
  2. CLARITIN REDITABS [Suspect]
     Indication: MEDICAL OBSERVATION
     Dosage: 5 MG, QAM
     Route: 048
     Dates: start: 20120416

REACTIONS (1)
  - DRUG INEFFECTIVE [None]
